FAERS Safety Report 4319095-9 (Version None)
Quarter: 2004Q1

REPORT INFORMATION
  Report Type: 
  Country: None (occurrence: None)
  Receive Date: 20040318
  Receipt Date: 20031210
  Transmission Date: 20041129
  Serious: No
  Sender: FDA-Public Use
  Company Number: 64886-2003-004

PATIENT

DRUGS (1)
  1. LEUCOVORIN CALCIUM FOR INJECTION [Suspect]
     Dosage: ONCE IV
     Route: 042

REACTIONS (1)
  - HYPERSENSITIVITY [None]
